FAERS Safety Report 5290538-X (Version None)
Quarter: 2007Q2

REPORT INFORMATION
  Report Type: 
  Country: None (occurrence: None)
  Receive Date: 20070405
  Receipt Date: 20070405
  Transmission Date: 20071010
  Serious: Yes (Hospitalization)
  Sender: FDA-Public Use
  Company Number: None

PATIENT
  Sex: Male
  Weight: 83.6 kg

DRUGS (1)
  1. INTRON A [Suspect]
     Dosage: 36 MU
     Dates: end: 20070101

REACTIONS (1)
  - FATIGUE [None]
